FAERS Safety Report 23037824 (Version 1)
Quarter: 2023Q4

REPORT INFORMATION
  Report Type: Spontaneous
  Country: US (occurrence: None)
  Receive Date: 20231005
  Receipt Date: 20231005
  Transmission Date: 20240110
  Serious: Yes (Life-Threatening, Disabling, Other)
  Sender: FDA-Public Use
  Company Number: None

PATIENT
  Age: 50 Year
  Sex: Female

DRUGS (1)
  1. SEMAGLUTIDE [Suspect]
     Active Substance: SEMAGLUTIDE
     Indication: Weight decreased
     Dosage: OTHER STRENGTH : .175;?OTHER QUANTITY : 1 INJECTION(S);?
     Route: 058
     Dates: start: 20230919, end: 20230920

REACTIONS (3)
  - Headache [None]
  - Abdominal pain upper [None]
  - Hypoglycaemia [None]

NARRATIVE: CASE EVENT DATE: 20230919
